FAERS Safety Report 11987957 (Version 2)
Quarter: 2016Q2

REPORT INFORMATION
  Report Type: Report from Study
  Country: JP (occurrence: JP)
  Receive Date: 20160202
  Receipt Date: 20160511
  Transmission Date: 20160815
  Serious: No
  Sender: FDA-Public Use
  Company Number: JP-EISAI MEDICAL RESEARCH-EC-2016-014024

PATIENT
  Age: 70 Year
  Sex: Female
  Weight: 45 kg

DRUGS (8)
  1. LENVIMA [Suspect]
     Active Substance: LENVATINIB
     Indication: PAPILLARY THYROID CANCER
     Route: 048
     Dates: start: 20150629, end: 20150701
  2. LENVIMA [Suspect]
     Active Substance: LENVATINIB
     Route: 048
     Dates: start: 20150722, end: 20150724
  3. LEVOTHYROXINE SODIUM HYDRATE [Concomitant]
  4. PYRIDOXAL [Concomitant]
     Active Substance: PYRIDOXAL
  5. HIRUDOID [Concomitant]
     Active Substance: GLYCOSAMINOGLYCANS
  6. LENVIMA [Suspect]
     Active Substance: LENVATINIB
     Route: 048
     Dates: start: 20150702, end: 20150721
  7. KERATINAMIN [Concomitant]
     Active Substance: UREA
  8. MYSER [Concomitant]
     Active Substance: DIFLUPREDNATE

REACTIONS (1)
  - Hypertension [Recovered/Resolved]

NARRATIVE: CASE EVENT DATE: 20150701
